FAERS Safety Report 9325918 (Version 1)
Quarter: 2013Q2

REPORT INFORMATION
  Report Type: Spontaneous
  Country: US (occurrence: None)
  Receive Date: 20130603
  Receipt Date: 20130603
  Transmission Date: 20140414
  Serious: No
  Sender: FDA-Public Use
  Company Number: None

PATIENT
  Age: 53 Year
  Sex: Male

DRUGS (1)
  1. CIPROFLOXACIN [Suspect]
     Indication: PROSTATITIS
     Dosage: 28 TOTAL, 1 TABLET, 2X A DAY
     Route: 048
     Dates: start: 20130515, end: 20130518

REACTIONS (3)
  - Urticaria [None]
  - Erythema [None]
  - Pruritus [None]
